FAERS Safety Report 4694429-4 (Version None)
Quarter: 2005Q2

REPORT INFORMATION
  Report Type: 
  Country: None (occurrence: None)
  Receive Date: 20050620
  Receipt Date: 20050614
  Transmission Date: 20051028
  Serious: Yes (Other)
  Sender: FDA-Public Use
  Company Number: US-JNJFOC-20050603986

PATIENT
  Age: 68 Year
  Sex: Male

DRUGS (5)
  1. LEVAQUIN [Suspect]
     Route: 049
  2. SINEMET [Concomitant]
     Route: 049
  3. SINEMET [Concomitant]
     Indication: DIZZINESS
     Route: 049
  4. PLAVIX [Concomitant]
     Indication: ANTICOAGULANT THERAPY
     Route: 049
  5. VIAGRA [Concomitant]

REACTIONS (2)
  - AGEUSIA [None]
  - ANOSMIA [None]
